FAERS Safety Report 7878285-9 (Version None)
Quarter: 2011Q4

REPORT INFORMATION
  Report Type: 
  Country: None (occurrence: None)
  Receive Date: 20111028
  Receipt Date: 20111018
  Transmission Date: 20120403
  Serious: Yes (Hospitalization)
  Sender: FDA-Public Use
  Company Number: 2011SP050085

PATIENT
  Age: 52 Year
  Sex: Female
  Weight: 78.1 kg

DRUGS (2)
  1. METHIMAZOLE [Suspect]
     Indication: HYPERTHYROIDISM
     Dosage: PO
     Route: 048
     Dates: start: 20100824, end: 20100920
  2. SAPHRIS [Suspect]
     Indication: PRODUCT USED FOR UNKNOWN INDICATION
     Dosage: PO
     Route: 048
     Dates: start: 20100918, end: 20100920

REACTIONS (4)
  - HEPATIC FAILURE [None]
  - STEVENS-JOHNSON SYNDROME [None]
  - MENTAL STATUS CHANGES [None]
  - RENAL FAILURE ACUTE [None]
